FAERS Safety Report 4277060-4 (Version None)
Quarter: 2004Q1

REPORT INFORMATION
  Report Type: 
  Country: None (occurrence: None)
  Receive Date: 20040120
  Receipt Date: 20040107
  Transmission Date: 20041129
  Serious: Yes (Other)
  Sender: FDA-Public Use
  Company Number: HQWYE286113JAN04

PATIENT
  Age: 46 Year
  Sex: Female

DRUGS (2)
  1. EFFEXOR XR [Suspect]
     Indication: MAJOR DEPRESSION
     Dosage: 300 MG DAILY (PROGRESSIVE TITRATION FOR FIRST 3
     Route: 048
  2. LITHIUM CARBONATE [Suspect]
     Indication: MAJOR DEPRESSION
     Dosage: BASED ON 24-HOUR SINGLE DOSE PLASMA LEVEL
     Route: 048

REACTIONS (6)
  - DRUG INEFFECTIVE [None]
  - DRUG INTERACTION [None]
  - HYPOMANIA [None]
  - NAUSEA [None]
  - SEROTONIN SYNDROME [None]
  - TREMOR [None]
